FAERS Safety Report 4503800-2 (Version None)
Quarter: 2004Q4

REPORT INFORMATION
  Report Type: 
  Country: None (occurrence: None)
  Receive Date: 20041117
  Receipt Date: 20030825
  Transmission Date: 20050328
  Serious: Yes (Death, Hospitalization)
  Sender: FDA-Public Use
  Company Number: IT-MERCK-0308ITA00017

PATIENT
  Age: 61 Year
  Sex: Male

DRUGS (3)
  1. VIOXX [Suspect]
     Indication: OSTEOARTHRITIS
     Route: 048
     Dates: start: 20020501, end: 20021223
  2. ESOMEPRAZOLE MAGNESIUM [Suspect]
     Indication: PEPTIC ULCER
     Route: 048
     Dates: start: 20010501, end: 20021223
  3. HYDROCHLOROTHIAZIDE AND RAMIPRIL [Suspect]
     Indication: HYPERTENSION
     Route: 048
     Dates: start: 20010501, end: 20021223

REACTIONS (9)
  - ABDOMINAL PAIN [None]
  - ASCITES [None]
  - DISSEMINATED INTRAVASCULAR COAGULATION [None]
  - GENERAL PHYSICAL HEALTH DETERIORATION [None]
  - HEPATIC FAILURE [None]
  - HEPATIC NECROSIS [None]
  - HEPATORENAL SYNDROME [None]
  - JAUNDICE CHOLESTATIC [None]
  - OLIGURIA [None]
